FAERS Safety Report 4751958-2 (Version None)
Quarter: 2005Q3

REPORT INFORMATION
  Report Type: 
  Country: None (occurrence: None)
  Receive Date: 20050822
  Receipt Date: 20050627
  Transmission Date: 20060218
  Serious: No
  Sender: FDA-Public Use
  Company Number: PHEH2005US07408

PATIENT
  Age: 35 Year
  Sex: Female
  Weight: 64.4 kg

DRUGS (14)
  1. ZELNORM [Suspect]
     Indication: IRRITABLE BOWEL SYNDROME
     Dosage: ORAL
     Route: 048
  2. SYNTHROID [Concomitant]
  3. LAXATIVES (NO INGREDIENTS/SUBSTANCES) [Concomitant]
  4. ANUSOL-HC (HYDROCORTISONE ACETATE) [Concomitant]
  5. CELEBREX [Concomitant]
  6. ALLEGRA [Concomitant]
  7. VICODIN ES [Concomitant]
  8. LEXAPRO [Concomitant]
  9. VIOXX [Concomitant]
  10. BEXTRA [Concomitant]
  11. ZANAFLEX [Concomitant]
  12. ATIVAN [Concomitant]
  13. NEXIUM [Concomitant]
  14. RELPAX (ELETRIPTAN HYDROBROMIDE) [Concomitant]

REACTIONS (11)
  - ABDOMINAL PAIN [None]
  - BLINDNESS [None]
  - GASTRITIS [None]
  - HAEMORRHOIDS [None]
  - HEADACHE [None]
  - HELICOBACTER INFECTION [None]
  - MIGRAINE [None]
  - PANIC ATTACK [None]
  - PHARYNGITIS STREPTOCOCCAL [None]
  - RHINITIS ALLERGIC [None]
  - URINARY TRACT INFECTION [None]
